FAERS Safety Report 25262073 (Version 1)
Quarter: 2025Q2

REPORT INFORMATION
  Report Type: Spontaneous
  Country: US (occurrence: US)
  Receive Date: 20250502
  Receipt Date: 20250502
  Transmission Date: 20250716
  Serious: No
  Sender: ABBVIE
  Company Number: US-ABBVIE-6256417

PATIENT

DRUGS (2)
  1. DURYSTA [Suspect]
     Active Substance: BIMATOPROST
     Indication: Glaucoma
     Route: 031
  2. DURYSTA [Suspect]
     Active Substance: BIMATOPROST
     Indication: Intraocular pressure test

REACTIONS (1)
  - Off label use [Unknown]
